FAERS Safety Report 16158430 (Version 2)
Quarter: 2019Q2

REPORT INFORMATION
  Report Type: Report from Study
  Country: MX (occurrence: MX)
  Receive Date: 20190404
  Receipt Date: 20190424
  Transmission Date: 20190711
  Serious: Yes (Other)
  Sender: FDA-Public Use
  Company Number: PHHY2019MX076785

PATIENT
  Age: 88 Year
  Sex: Female
  Weight: 53 kg

DRUGS (2)
  1. ENTRESTO [Suspect]
     Active Substance: SACUBITRIL\VALSARTAN
     Indication: ENDOCARDITIS
     Dosage: 50 MG, BID
     Route: 048
     Dates: start: 20180816, end: 20190201
  2. MEMANTINE. [Concomitant]
     Active Substance: MEMANTINE
     Indication: HYPOXIA
     Dosage: 10 MG, QD
     Route: 048
     Dates: start: 20110301

REACTIONS (8)
  - Haemoglobin decreased [Unknown]
  - Dizziness [Recovered/Resolved]
  - Gastrointestinal haemorrhage [Recovered/Resolved]
  - Hypotension [Recovered/Resolved]
  - Product prescribing error [Unknown]
  - Blood pressure increased [Unknown]
  - Syncope [Recovered/Resolved]
  - Product use in unapproved indication [Unknown]

NARRATIVE: CASE EVENT DATE: 20190120
